FAERS Safety Report 25462387 (Version 1)
Quarter: 2025Q2

REPORT INFORMATION
  Report Type: Report from Study
  Country: US (occurrence: US)
  Receive Date: 20250620
  Receipt Date: 20250620
  Transmission Date: 20250717
  Serious: Yes (Death)
  Sender: PFIZER
  Company Number: US-PFIZER INC-202500123593

PATIENT
  Age: 82 Year
  Sex: Male

DRUGS (16)
  1. VYNDAQEL [Suspect]
     Active Substance: TAFAMIDIS MEGLUMINE
     Dosage: 80 MG, 1X/DAY
     Route: 048
     Dates: start: 20250211
  2. ROSUVASTATIN [Concomitant]
     Active Substance: ROSUVASTATIN
  3. LEVOTHYROXINE [Concomitant]
     Active Substance: LEVOTHYROXINE
  4. NORTRIPTYLINE [Concomitant]
     Active Substance: NORTRIPTYLINE
  5. FUROSEMIDE [Concomitant]
     Active Substance: FUROSEMIDE
  6. QULIPTA [Concomitant]
     Active Substance: ATOGEPANT
  7. LISINOPRIL [Concomitant]
     Active Substance: LISINOPRIL
  8. HYDROCODONE BITARTRATE AND ACETAMINOPHEN [Concomitant]
     Active Substance: ACETAMINOPHEN\HYDROCODONE BITARTRATE
  9. SILODOSIN [Concomitant]
     Active Substance: SILODOSIN
  10. TADALAFIL [Concomitant]
     Active Substance: TADALAFIL
  11. DUTASTERIDE [Concomitant]
     Active Substance: DUTASTERIDE
  12. TAMSULOSIN [Concomitant]
     Active Substance: TAMSULOSIN
  13. JARDIANCE [Concomitant]
     Active Substance: EMPAGLIFLOZIN
  14. ELIQUIS [Concomitant]
     Active Substance: APIXABAN
  15. AMIODARONE [Concomitant]
     Active Substance: AMIODARONE
  16. GABAPENTIN [Concomitant]
     Active Substance: GABAPENTIN

REACTIONS (1)
  - Death [Fatal]

NARRATIVE: CASE EVENT DATE: 20250101
